FAERS Safety Report 4332561-5 (Version None)
Quarter: 2004Q1

REPORT INFORMATION
  Report Type: 
  Country: None (occurrence: None)
  Receive Date: 20040330
  Receipt Date: 20040318
  Transmission Date: 20041129
  Serious: Yes (Hospitalization)
  Sender: FDA-Public Use
  Company Number: JP-JNJFOC-20040304421

PATIENT
  Age: 20 Year
  Sex: 0

DRUGS (5)
  1. REMICADE [Suspect]
     Indication: ANAL FISTULA
     Dosage: IN 1 AS NECESSARY, INTRAVENOUS; SEE IMAGE
     Route: 041
     Dates: start: 20030801, end: 20030801
  2. REMICADE [Suspect]
     Indication: CROHN'S DISEASE
     Dosage: IN 1 AS NECESSARY, INTRAVENOUS; SEE IMAGE
     Route: 041
     Dates: start: 20030801, end: 20030801
  3. REMICADE [Suspect]
     Indication: ANAL FISTULA
     Dosage: IN 1 AS NECESSARY, INTRAVENOUS; SEE IMAGE
     Route: 041
     Dates: start: 20040201, end: 20040201
  4. REMICADE [Suspect]
     Indication: CROHN'S DISEASE
     Dosage: IN 1 AS NECESSARY, INTRAVENOUS; SEE IMAGE
     Route: 041
     Dates: start: 20040201, end: 20040201
  5. PENTASA [Concomitant]

REACTIONS (3)
  - ABSCESS [None]
  - ANAL FISTULA [None]
  - DISEASE RECURRENCE [None]
